FAERS Safety Report 7268650-5 (Version None)
Quarter: 2011Q1

REPORT INFORMATION
  Report Type: 
  Country: None (occurrence: None)
  Receive Date: 20110121
  Receipt Date: 20110106
  Transmission Date: 20110831
  Serious: Yes (Other)
  Sender: FDA-Public Use
  Company Number: 1000018214

PATIENT
  Age: 23 Year
  Sex: Female

DRUGS (4)
  1. ESCITALOPRAM OXALATE [Suspect]
     Indication: DEPRESSION
     Dosage: (10 MG)
  2. ARIPIPRAZOLE [Suspect]
     Indication: AGITATION
     Dosage: (10 MG,ONCE), (10 MG)
  3. ARIPIPRAZOLE [Suspect]
     Indication: IRRITABILITY
     Dosage: (10 MG,ONCE), (10 MG)
  4. CLONAZEPAM [Concomitant]

REACTIONS (11)
  - DRUG INTERACTION [None]
  - DYSTONIA [None]
  - JOINT DISLOCATION [None]
  - SALIVARY HYPERSECRETION [None]
  - AGITATION [None]
  - MUSCLE SPASMS [None]
  - IRRITABILITY [None]
  - ARTHRALGIA [None]
  - SPEECH DISORDER [None]
  - DYSPHAGIA [None]
  - TREMOR [None]
